FAERS Safety Report 8770079 (Version 1)
Quarter: 2012Q4

REPORT INFORMATION
  Report Type: 
  Country: US (occurrence: US)
  Receive Date: 20120905
  Receipt Date: 20120905
  Transmission Date: 20130627
  Serious: No
  Sender: FDA-Public Use
  Company Number: US-PFIZER INC-2012215135

PATIENT
  Age: 57 Year
  Sex: Male
  Weight: 100 kg

DRUGS (3)
  1. ADVIL [Suspect]
     Indication: HEADACHE
     Dosage: 200 mg, as needed
     Route: 048
  2. ADVIL [Suspect]
     Dosage: 400 mg, as needed
     Route: 048
     Dates: end: 20120831
  3. ALEVE [Concomitant]
     Indication: HEADACHE
     Dosage: UNK, as needed
     Dates: end: 201208

REACTIONS (4)
  - Drug ineffective [Unknown]
  - Incorrect dose administered [Unknown]
  - Swelling face [Recovering/Resolving]
  - Erythema [Not Recovered/Not Resolved]
